FAERS Safety Report 9748192 (Version 1)
Quarter: 2013Q4

REPORT INFORMATION
  Report Type: Spontaneous
  Country: GB (occurrence: None)
  Receive Date: 20131206
  Receipt Date: 20131206
  Transmission Date: 20140711
  Serious: Yes (Death)
  Sender: FDA-Public Use
  Company Number: FK201305109

PATIENT
  Sex: Male

DRUGS (4)
  1. FUROSEMIDE (MANUFACTURER UNKNOWN) (FUROSEMIDE) (FUROSEMIDE) [Suspect]
     Indication: PRODUCT USED FOR UNKNOWN INDICATION
     Route: 048
  2. DIGOXIN (DIGOXIN) [Concomitant]
  3. RAMIPRIL (RAMIPRIL) [Concomitant]
  4. WARFARIN (WARFARIN) [Concomitant]

REACTIONS (6)
  - Aortic aneurysm rupture [None]
  - Arteriosclerosis [None]
  - Haemothorax [None]
  - Hypertrophy [None]
  - Myocardial ischaemia [None]
  - Pollakiuria [None]
